FAERS Safety Report 6163451-3 (Version None)
Quarter: 2009Q2

REPORT INFORMATION
  Report Type: 
  Country: None (occurrence: None)
  Receive Date: 20090420
  Receipt Date: 20090420
  Transmission Date: 20091009
  Serious: No
  Sender: FDA-Public Use
  Company Number: None

PATIENT
  Age: 38 Year
  Sex: Female
  Weight: 84.8226 kg

DRUGS (2)
  1. ALPRAZOLAM [Suspect]
     Indication: ANXIETY
     Dosage: 1MG Q 8-12 HOURS PRN PO, 6 NIGHTS
     Route: 048
     Dates: start: 20090410, end: 20090417
  2. ALPRAZOLAM [Suspect]
     Indication: INSOMNIA
     Dosage: 1MG Q 8-12 HOURS PRN PO, 6 NIGHTS
     Route: 048
     Dates: start: 20090410, end: 20090417

REACTIONS (3)
  - INSOMNIA [None]
  - NO THERAPEUTIC RESPONSE [None]
  - PRODUCT SUBSTITUTION ISSUE [None]
